FAERS Safety Report 8476884 (Version 2)
Quarter: 2012Q4

REPORT INFORMATION
  Report Type: 
  Country: ES (occurrence: ES)
  Receive Date: 20120326
  Receipt Date: 20120905
  Transmission Date: 20130627
  Serious: Yes (Death, Hospitalization)
  Sender: FDA-Public Use
  Company Number: ES-ELI_LILLY_AND_COMPANY-ES201203004689

PATIENT
  Age: 67 Year
  Sex: Female
  Weight: 70 kg

DRUGS (6)
  1. FORSTEO [Suspect]
     Indication: OSTEOPOROSIS
     Dosage: 20 ug, qd
     Route: 058
     Dates: start: 20110622, end: 20120108
  2. ACETILCISTEINA [Concomitant]
     Indication: PULMONARY FIBROSIS
     Dosage: 600 mg, every 8 hrs
     Dates: end: 20120110
  3. CORTISON [Concomitant]
     Indication: PULMONARY FIBROSIS
     Dosage: UNK
     Dates: end: 20120110
  4. SERETIDE [Concomitant]
     Indication: PULMONARY FIBROSIS
     Dosage: 1 DF, qd
     Dates: end: 20120110
  5. SPIRIVA [Concomitant]
     Indication: PULMONARY FIBROSIS
     Dosage: 1 DF, bid
     Dates: end: 20120110
  6. ADIRO [Concomitant]
     Indication: PULMONARY FIBROSIS
     Dosage: UNK
     Dates: end: 20120110

REACTIONS (3)
  - Respiratory failure [Fatal]
  - Pneumonia [Fatal]
  - Idiopathic pulmonary fibrosis [Fatal]
